FAERS Safety Report 7749290-8 (Version None)
Quarter: 2011Q3

REPORT INFORMATION
  Report Type: 
  Country: None (occurrence: None)
  Receive Date: 20110914
  Receipt Date: 20110905
  Transmission Date: 20111222
  Serious: Yes (Other)
  Sender: FDA-Public Use
  Company Number: SI-UCBSA-040735

PATIENT
  Sex: Male

DRUGS (8)
  1. KEPPRA [Suspect]
     Route: 042
     Dates: start: 20110601
  2. PRIMOTREN [Concomitant]
  3. MYCOPHENOLATE MOFETIL [Concomitant]
  4. ROCALTROL [Concomitant]
  5. KEPPRA [Suspect]
     Indication: EPILEPSY
     Route: 042
     Dates: start: 20110518, end: 20110601
  6. CORTICOSTEROID THERAPY [Concomitant]
     Indication: ACUTE GRAFT VERSUS HOST DISEASE
  7. CACO3 [Concomitant]
  8. DIFLUCAN [Concomitant]

REACTIONS (2)
  - PANCYTOPENIA [None]
  - CONVULSION [None]
